FAERS Safety Report 9312329 (Version 2)
Quarter: 2013Q2

REPORT INFORMATION
  Report Type: Spontaneous
  Country: FR (occurrence: FR)
  Receive Date: 20130528
  Receipt Date: 20130611
  Transmission Date: 20140414
  Serious: Yes (Hospitalization, Disabling, Other)
  Sender: FDA-Public Use
  Company Number: FR-JNJFOC-20130515405

PATIENT
  Age: 66 Year
  Sex: Female

DRUGS (14)
  1. DOXORUBICIN HYDROCHLORIDE (CAELYX) [Suspect]
     Indication: OVARIAN EPITHELIAL CANCER
     Route: 042
     Dates: start: 20130115, end: 20130218
  2. AVASTIN [Suspect]
     Indication: OVARIAN EPITHELIAL CANCER
     Route: 042
     Dates: start: 201206, end: 20130218
  3. SOLUPRED [Suspect]
     Indication: PRODUCT USED FOR UNKNOWN INDICATION
     Dosage: ORODISPERSIBLE TABLET
     Route: 048
  4. MONOCRIXO [Concomitant]
     Route: 065
  5. DAFALGAN [Concomitant]
     Dosage: EVERY 6 OR 8 HOUR AS NECESSARY
     Route: 065
  6. MYOLASTAN [Concomitant]
     Route: 065
  7. LYSANXIA [Concomitant]
     Route: 065
  8. FUROSEMIDE [Concomitant]
     Route: 065
  9. EUPANTOL [Concomitant]
     Route: 065
  10. BECILAN [Concomitant]
     Route: 065
  11. ABUFENE [Concomitant]
     Route: 065
  12. INNOHEP [Concomitant]
     Indication: PULMONARY EMBOLISM
     Route: 065
  13. SYMBICORT [Concomitant]
     Dosage: 400/12 UG AT 1 INHALATION TWICE A DAY
     Route: 055
  14. VENTOLINE INHALER [Concomitant]
     Route: 055

REACTIONS (2)
  - Pneumocystis jirovecii pneumonia [Recovering/Resolving]
  - Palmar-plantar erythrodysaesthesia syndrome [Recovered/Resolved]
